FAERS Safety Report 16452248 (Version 2)
Quarter: 2019Q2

REPORT INFORMATION
  Report Type: Report from Study
  Country: None (occurrence: US)
  Receive Date: 20190619
  Receipt Date: 20190625
  Transmission Date: 20190711
  Serious: Yes (Other)
  Sender: FDA-Public Use
  Company Number: US-ABBVIE-19K-163-2824870-00

PATIENT
  Sex: Male
  Weight: 68.1 kg

DRUGS (2)
  1. VENCLEXTA [Suspect]
     Active Substance: VENETOCLAX
     Route: 048
     Dates: start: 2019
  2. VENCLEXTA [Suspect]
     Active Substance: VENETOCLAX
     Indication: WALDENSTROM^S MACROGLOBULINAEMIA
     Route: 048
     Dates: start: 2019, end: 2019

REACTIONS (3)
  - Neutropenia [Recovered/Resolved]
  - Intentional product use issue [Unknown]
  - Hernia [Unknown]

NARRATIVE: CASE EVENT DATE: 2019
